FAERS Safety Report 7588063-6 (Version None)
Quarter: 2011Q3

REPORT INFORMATION
  Report Type: 
  Country: None (occurrence: None)
  Receive Date: 20110705
  Receipt Date: 20110628
  Transmission Date: 20111222
  Serious: No
  Sender: FDA-Public Use
  Company Number: US-PFIZER INC-2011146388

PATIENT
  Age: 48 Year
  Sex: Male

DRUGS (3)
  1. KLONOPIN [Concomitant]
     Dosage: 0.5 MG, UNK
  2. PRISTIQ [Suspect]
     Dosage: 50 MG, 1X/DAY
     Dates: start: 20110101, end: 20110101
  3. GEODON [Concomitant]
     Dosage: UNK

REACTIONS (1)
  - PARAESTHESIA [None]
